FAERS Safety Report 16638647 (Version 2)
Quarter: 2019Q3

REPORT INFORMATION
  Report Type: Spontaneous
  Country: CN (occurrence: CN)
  Receive Date: 20190726
  Receipt Date: 20190731
  Transmission Date: 20191004
  Serious: Yes (Death, Other)
  Sender: FDA-Public Use
  Company Number: CN-ASTRAZENECA-2019SF06896

PATIENT
  Age: 18115 Day
  Sex: Female
  Weight: 55 kg

DRUGS (4)
  1. LYNPARZA [Suspect]
     Active Substance: OLAPARIB
     Indication: OVARIAN EPITHELIAL CANCER
     Route: 048
     Dates: start: 201812, end: 201902
  2. LYNPARZA [Suspect]
     Active Substance: OLAPARIB
     Indication: OVARIAN EPITHELIAL CANCER
     Dosage: DOMESTIC VERSION
     Route: 048
     Dates: start: 201902, end: 201905
  3. LYNPARZA [Suspect]
     Active Substance: OLAPARIB
     Indication: OVARIAN EPITHELIAL CANCER
     Route: 048
  4. LYNPARZA [Suspect]
     Active Substance: OLAPARIB
     Indication: OVARIAN EPITHELIAL CANCER
     Route: 048

REACTIONS (15)
  - Pyrexia [Unknown]
  - Metastases to bone [Unknown]
  - Coma [Unknown]
  - Balance disorder [Unknown]
  - Somnolence [Unknown]
  - Asthenia [Unknown]
  - Brain oedema [Unknown]
  - Anaemia [Unknown]
  - Metastases to central nervous system [Fatal]
  - Epilepsy [Unknown]
  - Dehydration [Unknown]
  - Malignant neoplasm progression [Fatal]
  - Metastases to spine [Unknown]
  - Dysphagia [Unknown]
  - White blood cell count abnormal [Unknown]

NARRATIVE: CASE EVENT DATE: 20190504
